FAERS Safety Report 23198423 (Version 1)
Quarter: 2023Q4

REPORT INFORMATION
  Report Type: Spontaneous
  Country: CN (occurrence: CN)
  Receive Date: 20231117
  Receipt Date: 20231117
  Transmission Date: 20240110
  Serious: Yes (Life-Threatening, Hospitalization, Other)
  Sender: FDA-Public Use
  Company Number: CN-PFIZER INC-PV202300185744

PATIENT
  Age: 58 Year
  Sex: Female
  Weight: 56 kg

DRUGS (8)
  1. CYTARABINE [Suspect]
     Active Substance: CYTARABINE
     Indication: Acute myeloid leukaemia
     Dosage: 0.050 G, 1X/DAY
     Route: 037
     Dates: start: 20231020, end: 20231020
  2. CYTARABINE [Suspect]
     Active Substance: CYTARABINE
     Indication: Acute myeloid leukaemia
     Dosage: 3.000 G, 2X/DAY
     Route: 041
     Dates: start: 20231024, end: 20231026
  3. CYTARABINE [Suspect]
     Active Substance: CYTARABINE
     Dosage: 3.000 G, 2X/DAY
     Route: 041
     Dates: start: 20231024, end: 20231026
  4. METHOTREXATE SODIUM [Suspect]
     Active Substance: METHOTREXATE SODIUM
     Indication: Acute myeloid leukaemia
     Dosage: 10.000 MG, 1X/DAY
     Route: 037
     Dates: start: 20231020, end: 20231020
  5. VENCLEXTA [Suspect]
     Active Substance: VENETOCLAX
     Indication: Acute myeloid leukaemia
     Dosage: 400.000 MG, 1X/DAY
     Route: 048
     Dates: start: 20231023, end: 20231102
  6. DEXAMETHASONE SODIUM PHOSPHATE [Concomitant]
     Active Substance: DEXAMETHASONE SODIUM PHOSPHATE
     Indication: Acute myeloid leukaemia
     Dosage: 5.000 MG, 1X/DAY
     Route: 037
     Dates: start: 20231020, end: 20231020
  7. SODIUM CHLORIDE [Concomitant]
     Active Substance: SODIUM CHLORIDE
     Indication: Vehicle solution use
     Dosage: 4.000 ML, 1X/DAY
     Route: 037
     Dates: start: 20231020, end: 20231020
  8. SODIUM CHLORIDE [Concomitant]
     Active Substance: SODIUM CHLORIDE
     Indication: Vehicle solution use
     Dosage: 500.000 ML, 2X/DAY
     Route: 041
     Dates: start: 20231024, end: 20231026

REACTIONS (4)
  - Pruritus [Recovering/Resolving]
  - Myelosuppression [Recovering/Resolving]
  - Rash [Recovering/Resolving]
  - Drug eruption [Recovering/Resolving]

NARRATIVE: CASE EVENT DATE: 20231026
